FAERS Safety Report 4313634-X (Version None)
Quarter: 2004Q1

REPORT INFORMATION
  Report Type: 
  Country: None (occurrence: None)
  Receive Date: 20040305
  Receipt Date: 20040301
  Transmission Date: 20041129
  Serious: Yes (Death)
  Sender: FDA-Public Use
  Company Number: US068142

PATIENT
  Age: 53 Year
  Sex: Female

DRUGS (1)
  1. EPOGEN [Suspect]
     Indication: ANAEMIA
     Dosage: 10000 U, 3 IN 1 WEEKS, SC
     Route: 058
     Dates: start: 20031101, end: 20040101

REACTIONS (1)
  - DEATH [None]
